FAERS Safety Report 7101368-8 (Version None)
Quarter: 2010Q4

REPORT INFORMATION
  Report Type: 
  Country: None (occurrence: None)
  Receive Date: 20101115
  Receipt Date: 20100721
  Transmission Date: 20110411
  Serious: No
  Sender: FDA-Public Use
  Company Number: US-PFIZER INC-2010091828

PATIENT
  Sex: Male

DRUGS (2)
  1. METHYLPREDNISOLONE [Suspect]
     Dosage: UNK
  2. SYMBICORT [Suspect]
     Dosage: UNK

REACTIONS (1)
  - OROPHARYNGEAL CANDIDIASIS [None]
